FAERS Safety Report 4616188-3 (Version None)
Quarter: 2005Q1

REPORT INFORMATION
  Report Type: 
  Country: None (occurrence: None)
  Receive Date: 20050317
  Receipt Date: 20050304
  Transmission Date: 20050727
  Serious: Yes (Other)
  Sender: FDA-Public Use
  Company Number: 2005-UK-00110UK

PATIENT
  Age: 82 Year
  Sex: Male

DRUGS (3)
  1. PRAMIPEXOLE (UK) (PRAMIPEXOLE DIHYDROCHLORIDE) (NR) [Suspect]
     Indication: PARKINSON'S DISEASE
     Dosage: 0.7MG TDS (, THREE TIMES DAILY) PO
     Route: 048
     Dates: start: 20040801
  2. BENDROFLUAZIDE (BENDROFLUAZIDE) (NR) [Concomitant]
  3. AMLODIPINE BESYLATE [Concomitant]

REACTIONS (4)
  - ALANINE AMINOTRANSFERASE INCREASED [None]
  - ASPARTATE AMINOTRANSFERASE INCREASED [None]
  - BLOOD CREATINE PHOSPHOKINASE INCREASED [None]
  - BLOOD LACTATE DEHYDROGENASE INCREASED [None]
